FAERS Safety Report 12236291 (Version 1)
Quarter: 2016Q2

REPORT INFORMATION
  Report Type: Spontaneous
  Country: US (occurrence: US)
  Receive Date: 20160404
  Receipt Date: 20160404
  Transmission Date: 20160815
  Serious: No
  Sender: FDA-Public Use
  Company Number: US-PFIZER INC-2016155418

PATIENT
  Age: 72 Year
  Sex: Male
  Weight: 70.31 kg

DRUGS (2)
  1. TRAMADOL. [Concomitant]
     Active Substance: TRAMADOL
     Indication: SHOULDER OPERATION
     Dosage: [TRAMADOL HYDROCHLORIDE 37.5MG]/[ ACETAMINOPHEN 325MG]
  2. ADVIL [Suspect]
     Active Substance: IBUPROFEN
     Indication: SPINAL OPERATION
     Dosage: 200 MG, 2X/DAY
     Route: 048
     Dates: start: 201602

REACTIONS (2)
  - Drug ineffective [Unknown]
  - Tinnitus [Unknown]

NARRATIVE: CASE EVENT DATE: 20160313
